FAERS Safety Report 11191492 (Version 1)
Quarter: 2015Q2

REPORT INFORMATION
  Report Type: Report from Study
  Country: GB (occurrence: GB)
  Receive Date: 20150616
  Receipt Date: 20150616
  Transmission Date: 20150821
  Serious: Yes (Other)
  Sender: FDA-Public Use
  Company Number: GB-LEO PHARMA-234581

PATIENT
  Age: 65 Year
  Sex: Female

DRUGS (1)
  1. PICATO [Suspect]
     Active Substance: INGENOL MEBUTATE
     Indication: ACTINIC KERATOSIS
     Route: 061
     Dates: start: 20150518, end: 20150520

REACTIONS (15)
  - Application site discharge [Recovered/Resolved]
  - Eye pain [Not Recovered/Not Resolved]
  - Hypersensitivity [Recovered/Resolved]
  - Application site warmth [Not Recovered/Not Resolved]
  - Rhinorrhoea [Not Recovered/Not Resolved]
  - Application site swelling [Not Recovered/Not Resolved]
  - Incorrect product storage [Unknown]
  - Application site erythema [Not Recovered/Not Resolved]
  - Eye irritation [Not Recovered/Not Resolved]
  - Lacrimation increased [Not Recovered/Not Resolved]
  - Eye swelling [Recovered/Resolved]
  - Application site paraesthesia [Unknown]
  - Headache [Not Recovered/Not Resolved]
  - Application site scab [Recovered/Resolved]
  - Application site reaction [Not Recovered/Not Resolved]

NARRATIVE: CASE EVENT DATE: 20150518
